FAERS Safety Report 5703850-4 (Version None)
Quarter: 2008Q2

REPORT INFORMATION
  Report Type: 
  Country: None (occurrence: None)
  Receive Date: 20080414
  Receipt Date: 20080409
  Transmission Date: 20081010
  Serious: Yes (Other)
  Sender: FDA-Public Use
  Company Number: DE-BRISTOL-MYERS SQUIBB COMPANY-14143895

PATIENT
  Age: 12 Year
  Sex: Female

DRUGS (4)
  1. CYCLOPHOSPHAMIDE [Suspect]
  2. BUSULFAN [Suspect]
  3. MELPHALAN [Suspect]
  4. MANGANESE [Suspect]

REACTIONS (2)
  - GRAFT VERSUS HOST DISEASE [None]
  - PARKINSON'S DISEASE [None]
